FAERS Safety Report 16189993 (Version 1)
Quarter: 2019Q2

REPORT INFORMATION
  Report Type: Spontaneous
  Country: US (occurrence: US)
  Receive Date: 20190411
  Receipt Date: 20190411
  Transmission Date: 20190711
  Serious: Yes (Other)
  Sender: FDA-Public Use
  Company Number: None

PATIENT
  Age: 38 Year
  Sex: Male
  Weight: 83.91 kg

DRUGS (1)
  1. LOSARTAN POTASSIUM TABLE [Suspect]
     Active Substance: LOSARTAN POTASSIUM

REACTIONS (2)
  - Musculoskeletal pain [None]
  - Recalled product administered [None]

NARRATIVE: CASE EVENT DATE: 20190201
